FAERS Safety Report 11795786 (Version 1)
Quarter: 2015Q4

REPORT INFORMATION
  Report Type: Spontaneous
  Country: US (occurrence: US)
  Receive Date: 20151202
  Receipt Date: 20151202
  Transmission Date: 20160305
  Serious: No
  Sender: FDA-Public Use
  Company Number: GXBR2015US000973

PATIENT
  Sex: Female

DRUGS (1)
  1. AZITHROMYCIN [Suspect]
     Active Substance: AZITHROMYCIN ANHYDROUS
     Indication: LYME DISEASE
     Dosage: 600 MG, BID
     Route: 048

REACTIONS (6)
  - Pain [Recovered/Resolved]
  - Drug ineffective [Recovered/Resolved]
  - Product quality issue [None]
  - Malaise [Recovered/Resolved]
  - Decreased activity [None]
  - Dysstasia [None]
